FAERS Safety Report 24453584 (Version 2)
Quarter: 2024Q4

REPORT INFORMATION
  Report Type: Report from Study
  Country: US (occurrence: US)
  Receive Date: 20241017
  Receipt Date: 20241018
  Transmission Date: 20250115
  Serious: No
  Sender: ROCHE
  Company Number: US-ROCHE-3392380

PATIENT
  Age: 71 Year
  Sex: Male

DRUGS (3)
  1. RITUXAN [Suspect]
     Active Substance: RITUXIMAB
     Indication: Pancytopenia
     Dosage: DAY 1, DAY 15 Q 28?1000 MG/2 VIALS, DATE OF SERVICE: 04/MAY/2023, 24/AUG/2023, 14/DEC/2023
     Route: 065
  2. RITUXAN [Suspect]
     Active Substance: RITUXIMAB
     Indication: Immune system disorder
  3. RITUXAN [Suspect]
     Active Substance: RITUXIMAB
     Indication: Connective tissue disorder

REACTIONS (2)
  - Off label use [Unknown]
  - No adverse event [Unknown]
